FAERS Safety Report 6701863-7 (Version None)
Quarter: 2010Q2

REPORT INFORMATION
  Report Type: 
  Country: None (occurrence: None)
  Receive Date: 20100427
  Receipt Date: 20100412
  Transmission Date: 20101027
  Serious: Yes (Other)
  Sender: FDA-Public Use
  Company Number: KV201000056

PATIENT
  Age: 30 Year
  Sex: Female
  Weight: 99.8 kg

DRUGS (13)
  1. MORPHINE SULFATE [Suspect]
     Indication: PAIN
     Dosage: 15 MG, BID, ORAL
     Route: 048
     Dates: start: 20080414, end: 20080101
  2. BACLOFEN [Concomitant]
  3. ELAVIL [Concomitant]
  4. LYRICA [Concomitant]
  5. PAXIL [Concomitant]
  6. IMITREX [Concomitant]
  7. TYLENOL (PARACETAMOL) [Concomitant]
  8. DEPO-PROVERA [Concomitant]
  9. MOTRIN [Concomitant]
  10. NEXIUM [Concomitant]
  11. LEVLEN (ETHINYLESTRADIOL, LEVONORGESTREL) [Concomitant]
  12. ASPIRIN [Concomitant]
  13. VIACTIV (CALCIUM) [Concomitant]

REACTIONS (26)
  - ABORTION SPONTANEOUS [None]
  - ARTHRALGIA [None]
  - BREAST DISCHARGE [None]
  - BREAST PAIN [None]
  - CHEST PAIN [None]
  - CRYING [None]
  - DENTAL CARIES [None]
  - DIZZINESS [None]
  - DRUG EXPOSURE DURING PREGNANCY [None]
  - DRUG INEFFECTIVE [None]
  - DRUG INTOLERANCE [None]
  - DYSPNOEA EXERTIONAL [None]
  - FIBROCYSTIC BREAST DISEASE [None]
  - GAIT DISTURBANCE [None]
  - HYPERSENSITIVITY [None]
  - JOINT RANGE OF MOTION DECREASED [None]
  - JOINT SWELLING [None]
  - MENISCUS LESION [None]
  - MUSCULOSKELETAL PAIN [None]
  - NAUSEA [None]
  - NECK PAIN [None]
  - OEDEMA PERIPHERAL [None]
  - PARAESTHESIA [None]
  - ROTATOR CUFF SYNDROME [None]
  - SYNOVITIS [None]
  - VAGINAL HAEMORRHAGE [None]
